FAERS Safety Report 18371264 (Version 1)
Quarter: 2020Q4

REPORT INFORMATION
  Report Type: Spontaneous
  Country: TW (occurrence: TW)
  Receive Date: 20201012
  Receipt Date: 20201012
  Transmission Date: 20210114
  Serious: Yes (Other)
  Sender: FDA-Public Use
  Company Number: TW-NOVOPROD-757746

PATIENT
  Age: 43 Year
  Sex: Male

DRUGS (11)
  1. NOVORAPID [Suspect]
     Active Substance: INSULIN ASPART
     Indication: LATENT AUTOIMMUNE DIABETES IN ADULTS
     Dosage: 0.13 IU/KG, QD
     Route: 058
     Dates: start: 2015
  2. SITAGLIPTIN [Suspect]
     Active Substance: SITAGLIPTIN
     Indication: LATENT AUTOIMMUNE DIABETES IN ADULTS
     Dosage: 100 MG, QD
     Route: 065
     Dates: start: 2015
  3. HUMALOG [Suspect]
     Active Substance: INSULIN LISPRO
     Indication: LATENT AUTOIMMUNE DIABETES IN ADULTS
     Dosage: 0.71 IU/KG, QD
     Route: 065
     Dates: start: 2015
  4. NOVOMIX 30 [Suspect]
     Active Substance: INSULIN ASPART
     Indication: LATENT AUTOIMMUNE DIABETES IN ADULTS
     Dosage: 0.46 IU/KG, QD
     Route: 065
  5. INSULIN GLARGINE [Suspect]
     Active Substance: INSULIN GLARGINE
     Indication: LATENT AUTOIMMUNE DIABETES IN ADULTS
     Dosage: 0.29 IU/KG, QD
     Route: 065
     Dates: start: 2015
  6. LEVEMIR [Suspect]
     Active Substance: INSULIN DETEMIR
     Indication: LATENT AUTOIMMUNE DIABETES IN ADULTS
     Dosage: 0.17 IU/KG, QD
     Route: 058
     Dates: start: 2015
  7. METFORMIN [Suspect]
     Active Substance: METFORMIN HYDROCHLORIDE
     Dosage: 1700 MG, QD
     Route: 065
  8. METFORMIN [Suspect]
     Active Substance: METFORMIN HYDROCHLORIDE
     Indication: LATENT AUTOIMMUNE DIABETES IN ADULTS
     Dosage: 1500 MG, QD
     Route: 065
  9. METFORMIN [Suspect]
     Active Substance: METFORMIN HYDROCHLORIDE
     Dosage: 2000 MG, QD
     Route: 065
  10. GLICLAZIDE MR [Suspect]
     Active Substance: GLICLAZIDE
     Indication: LATENT AUTOIMMUNE DIABETES IN ADULTS
     Dosage: 240 MG, QD
     Route: 065
     Dates: start: 2015
  11. GLICLAZIDE MR [Suspect]
     Active Substance: GLICLAZIDE
     Dosage: 120 MG, QD
     Route: 065

REACTIONS (2)
  - Treatment noncompliance [Unknown]
  - Diabetic ketoacidosis [Unknown]

NARRATIVE: CASE EVENT DATE: 2017
